FAERS Safety Report 19407629 (Version 3)
Quarter: 2021Q4

REPORT INFORMATION
  Report Type: Report from Study
  Country: None (occurrence: US)
  Receive Date: 20210612
  Receipt Date: 20211011
  Transmission Date: 20220303
  Serious: Yes (Hospitalization, Other)
  Sender: FDA-Public Use
  Company Number: US-ABBVIE-21K-163-3944364-00

PATIENT
  Sex: Female
  Weight: 90.8 kg

DRUGS (2)
  1. RINVOQ [Suspect]
     Active Substance: UPADACITINIB
     Indication: Product used for unknown indication
     Route: 048
     Dates: end: 202103
  2. RINVOQ [Suspect]
     Active Substance: UPADACITINIB
     Route: 048
     Dates: start: 20210608

REACTIONS (11)
  - Staphylococcal infection [Not Recovered/Not Resolved]
  - Nerve compression [Not Recovered/Not Resolved]
  - Postoperative wound infection [Unknown]
  - Fall [Recovered/Resolved]
  - Peripheral swelling [Not Recovered/Not Resolved]
  - Gait disturbance [Unknown]
  - Post procedural infection [Unknown]
  - Chills [Recovered/Resolved]
  - Feeding disorder [Unknown]
  - Peroneal nerve palsy [Unknown]
  - Thrombosis [Recovered/Resolved]

NARRATIVE: CASE EVENT DATE: 20210101
